FAERS Safety Report 15540595 (Version 7)
Quarter: 2019Q1

REPORT INFORMATION
  Report Type: Spontaneous
  Country: US (occurrence: US)
  Receive Date: 20181023
  Receipt Date: 20190131
  Transmission Date: 20190417
  Serious: Yes (Other)
  Sender: FDA-Public Use
  Company Number: US-TOLMAR, INC.-2018US010489

PATIENT

DRUGS (3)
  1. ASPIRIN                            /00002701/ [Concomitant]
     Active Substance: ASPIRIN
  2. MELATONIN [Concomitant]
     Active Substance: MELATONIN
  3. ELIGARD [Suspect]
     Active Substance: LEUPROLIDE ACETATE
     Indication: PROSTATE CANCER
     Dosage: 45 MG, 6 MONTH DOSE
     Route: 058
     Dates: start: 20180816

REACTIONS (21)
  - Dyscalculia [Recovering/Resolving]
  - Pollakiuria [Not Recovered/Not Resolved]
  - Confusional state [Not Recovered/Not Resolved]
  - Insomnia [Not Recovered/Not Resolved]
  - Mood swings [Recovering/Resolving]
  - Asthenia [Recovering/Resolving]
  - Injection site nodule [Recovering/Resolving]
  - Emotional distress [Recovering/Resolving]
  - Speech disorder [Recovering/Resolving]
  - Depression [Recovering/Resolving]
  - Nocturia [Not Recovered/Not Resolved]
  - Night sweats [Not Recovered/Not Resolved]
  - Anxiety [Recovering/Resolving]
  - Amnesia [Recovering/Resolving]
  - Mood altered [Recovering/Resolving]
  - Muscle atrophy [Recovering/Resolving]
  - Feeling abnormal [Not Recovered/Not Resolved]
  - Suicidal ideation [Unknown]
  - Teeth brittle [Recovering/Resolving]
  - Premature ageing [Recovering/Resolving]
  - Fatigue [Recovering/Resolving]

NARRATIVE: CASE EVENT DATE: 2018
